FAERS Safety Report 8407476 (Version 6)
Quarter: 2013Q4

REPORT INFORMATION
  Report Type: Report from Study
  Country: JP (occurrence: JP)
  Receive Date: 20120215
  Receipt Date: 20131007
  Transmission Date: 20140711
  Serious: Yes (Hospitalization, Other)
  Sender: FDA-Public Use
  Company Number: JP-BAYER-2012-014827

PATIENT
  Age: 81 Year
  Sex: Male
  Weight: 56.1 kg

DRUGS (18)
  1. TAKEPRON [Concomitant]
     Indication: GASTRITIS PROPHYLAXIS
     Dosage: DAILY DOSE 30 MG
     Route: 048
     Dates: start: 20120727
  2. FERROMIA [Concomitant]
     Indication: ANAEMIA
     Dosage: DAILY DOSE 100 MG
     Route: 048
     Dates: start: 20120712
  3. BIOFERMIN [Concomitant]
     Indication: DIARRHOEA
     Dosage: DAILY DOSE 3 DF
     Route: 048
     Dates: start: 20120413
  4. LASIX [Concomitant]
     Indication: PROPHYLAXIS
     Dosage: DAILY DOSE 20 MG
     Route: 048
     Dates: start: 20120221
  5. ALDACTONE A [Concomitant]
     Indication: PROPHYLAXIS
     Dosage: DAILY DOSE 25 MG
     Route: 048
     Dates: start: 20130221
  6. FEBUXOSTAT [Concomitant]
     Indication: HYPERURICAEMIA
     Dosage: DAILY DOSE 10 MG
     Route: 048
     Dates: start: 20120810
  7. LIVACT [Concomitant]
     Indication: HYPOALBUMINAEMIA
     Dosage: DAILY DOSE 3 DF
     Route: 048
     Dates: start: 20130221
  8. SORAFENIB (RAF KINASE INHIBITOR) [Suspect]
     Indication: HEPATOCELLULAR CARCINOMA
     Dosage: 400 MG, BID
     Dates: start: 20110815, end: 20130220
  9. SORAFENIB (RAF KINASE INHIBITOR) [Suspect]
     Indication: HEPATOCELLULAR CARCINOMA
     Dosage: 400 MG, QD
     Route: 048
     Dates: start: 20130307, end: 20130417
  10. SORAFENIB (RAF KINASE INHIBITOR) [Suspect]
     Indication: HEPATOCELLULAR CARCINOMA
     Dosage: 400 MG, ONCE A DAY
     Route: 048
     Dates: start: 20130418, end: 20130716
  11. MONOCLONAL ANTIBODIES [Suspect]
     Indication: HEPATOCELLULAR CARCINOMA
     Dosage: 6 MG/KG, OW
     Route: 042
     Dates: start: 20110815, end: 20130717
  12. NEO-MINOPHAGEN C [Concomitant]
     Indication: PROPHYLAXIS
     Dosage: 1 DF, TIW
     Route: 042
     Dates: start: 200909
  13. URSO [Concomitant]
     Indication: HEPATIC FUNCTION ABNORMAL
     Dosage: DAILY DOSE 300 MG
     Route: 048
     Dates: start: 20070801
  14. DERMOSOL DP [Concomitant]
     Indication: SKIN DISORDER
     Dosage: UNK
     Route: 061
     Dates: start: 20110829
  15. AMARYL [Concomitant]
     Indication: DIABETES MELLITUS
     Dosage: DAILY DOSE 2 MG
     Route: 048
     Dates: start: 201106
  16. AMLODIPINE [Concomitant]
     Indication: HYPERTENSION
     Dosage: DAILY DOSE 5 MG
     Route: 048
     Dates: start: 201006
  17. ROZEREM [Concomitant]
     Indication: INSOMNIA
     Dosage: DAILY DOSE 8 MG
     Route: 048
     Dates: start: 20110630
  18. RESLIN [Concomitant]
     Indication: DEPRESSION
     Dosage: DAILY DOSE 25 MG
     Route: 048
     Dates: start: 20110630

REACTIONS (1)
  - Colon cancer [Not Recovered/Not Resolved]
